FAERS Safety Report 6989826-8 (Version None)
Quarter: 2010Q3

REPORT INFORMATION
  Report Type: 
  Country: None (occurrence: None)
  Receive Date: 20100916
  Receipt Date: 20100310
  Transmission Date: 20110219
  Serious: Yes (Other)
  Sender: FDA-Public Use
  Company Number: US-PFIZER INC-2009265363

PATIENT
  Sex: Female
  Weight: 62.585 kg

DRUGS (4)
  1. LYRICA [Suspect]
     Indication: FIBROMYALGIA
     Dosage: 100 MG, 3X/DAY
     Route: 048
     Dates: start: 20080201, end: 20091001
  2. LYRICA [Suspect]
     Dosage: UNK
     Route: 048
  3. VITAMIN B COMPLEX CAP [Concomitant]
     Dosage: DAILY
  4. ESTRADIOL [Concomitant]
     Indication: HORMONE REPLACEMENT THERAPY
     Dosage: 2 MG, 1X/DAY
     Route: 048

REACTIONS (4)
  - DYSARTHRIA [None]
  - DYSPHEMIA [None]
  - MUSCULAR WEAKNESS [None]
  - VISION BLURRED [None]
